FAERS Safety Report 9845345 (Version 1)
Quarter: 2014Q1

REPORT INFORMATION
  Report Type: Spontaneous
  Country: US (occurrence: None)
  Receive Date: 20140122
  Receipt Date: 20140122
  Transmission Date: 20141002
  Serious: Yes (Death)
  Sender: FDA-Public Use
  Company Number: 2125267

PATIENT
  Age: 5 Month
  Sex: Male
  Weight: 5 kg

DRUGS (1)
  1. CALCIUM CHLORIDE [Suspect]
     Indication: PRODUCT USED FOR UNKNOWN INDICATION
     Route: 041

REACTIONS (2)
  - Hypercalcaemia [None]
  - Medication error [None]
